FAERS Safety Report 5423113-4 (Version None)
Quarter: 2007Q3

REPORT INFORMATION
  Report Type: 
  Country: None (occurrence: None)
  Receive Date: 20070821
  Receipt Date: 20070810
  Transmission Date: 20080115
  Serious: Yes (Other)
  Sender: FDA-Public Use
  Company Number: 161-20785-07071454

PATIENT
  Age: 55 Year
  Sex: Male

DRUGS (2)
  1. THALOMID [Suspect]
     Indication: MULTIPLE MYELOMA
     Dosage: 200 MG, QD X 12 DAYS PER MONTH,
  2. DEXAMETHASONE TAB [Suspect]
     Indication: MULTIPLE MYELOMA
     Dosage: 40 MG, QD FOR 12 DAYS PER MONTH,

REACTIONS (2)
  - CONDITION AGGRAVATED [None]
  - RHABDOMYOLYSIS [None]
